FAERS Safety Report 16995506 (Version 1)
Quarter: 2019Q4

REPORT INFORMATION
  Report Type: Spontaneous
  Country: US (occurrence: US)
  Receive Date: 20191105
  Receipt Date: 20191105
  Transmission Date: 20200122
  Serious: Yes (Death)
  Sender: FDA-Public Use
  Company Number: US-BEH-2019108905

PATIENT
  Age: 52 Year
  Sex: Female

DRUGS (14)
  1. FORTEO [Concomitant]
     Active Substance: TERIPARATIDE
  2. LEVETIRACETAM. [Concomitant]
     Active Substance: LEVETIRACETAM
  3. HYDROCODONE/IBUPROFEN [Concomitant]
     Active Substance: HYDROCODONE\IBUPROFEN
  4. GAMUNEX [Concomitant]
     Active Substance: HUMAN IMMUNOGLOBULIN G
  5. IRON [Concomitant]
     Active Substance: IRON
  6. DIAZEPAM. [Concomitant]
     Active Substance: DIAZEPAM
  7. PREDNISONE. [Concomitant]
     Active Substance: PREDNISONE
  8. LORAZEPAM. [Concomitant]
     Active Substance: LORAZEPAM
  9. EPIPEN [Concomitant]
     Active Substance: EPINEPHRINE
  10. LIDOCAINE. [Concomitant]
     Active Substance: LIDOCAINE
  11. MAGNESIUM [Concomitant]
     Active Substance: MAGNESIUM
  12. HIZENTRA [Suspect]
     Active Substance: HUMAN IMMUNOGLOBULIN G
     Indication: SELECTIVE IGA IMMUNODEFICIENCY
     Dosage: 5 GRAM, QOD
     Route: 058
     Dates: start: 20190918, end: 20191007
  13. IBUPROFEN. [Concomitant]
     Active Substance: IBUPROFEN
  14. POTASSIUM [Concomitant]
     Active Substance: POTASSIUM

REACTIONS (1)
  - Death [Fatal]

NARRATIVE: CASE EVENT DATE: 20191029
